FAERS Safety Report 18016460 (Version 1)
Quarter: 2020Q3

REPORT INFORMATION
  Report Type: Spontaneous
  Country: IT (occurrence: IT)
  Receive Date: 20200714
  Receipt Date: 20200714
  Transmission Date: 20201103
  Serious: Yes (Other)
  Sender: FDA-Public Use
  Company Number: IT-TEVA-2020-IT-1799765

PATIENT
  Age: 57 Year
  Sex: Female

DRUGS (15)
  1. MIRTAZAPINE. [Suspect]
     Active Substance: MIRTAZAPINE
     Indication: PROGRESSIVE MULTIFOCAL LEUKOENCEPHALOPATHY
     Route: 065
  2. DOXORUBICIN [Suspect]
     Active Substance: DOXORUBICIN
     Indication: HODGKIN^S DISEASE
     Route: 065
     Dates: start: 201006, end: 201012
  3. VINBLASTINE [Suspect]
     Active Substance: VINBLASTINE
     Indication: HODGKIN^S DISEASE
     Route: 065
     Dates: start: 201006, end: 201012
  4. ETOPOSIDE. [Suspect]
     Active Substance: ETOPOSIDE
     Indication: HODGKIN^S DISEASE RECURRENT
     Route: 065
     Dates: start: 201207, end: 201210
  5. CYCLOPHOSPHAMIDE. [Suspect]
     Active Substance: CYCLOPHOSPHAMIDE
     Indication: HODGKIN^S DISEASE RECURRENT
     Route: 065
     Dates: start: 201207, end: 201210
  6. GEMCITABINE. [Suspect]
     Active Substance: GEMCITABINE
     Indication: HODGKIN^S DISEASE RECURRENT
     Route: 065
  7. IFOSFAMIDE. [Suspect]
     Active Substance: IFOSFAMIDE
     Indication: HODGKIN^S DISEASE RECURRENT
     Route: 065
  8. VINORELBINE [Suspect]
     Active Substance: VINORELBINE TARTRATE
     Indication: HODGKIN^S DISEASE RECURRENT
     Route: 065
  9. PROCARBAZINE [Suspect]
     Active Substance: PROCARBAZINE
     Indication: HODGKIN^S DISEASE RECURRENT
     Route: 065
     Dates: start: 201207, end: 201210
  10. BLEOMYCIN [Suspect]
     Active Substance: BLEOMYCIN SULFATE
     Indication: HODGKIN^S DISEASE RECURRENT
     Route: 065
     Dates: start: 201207, end: 201210
  11. BLEOMYCIN [Suspect]
     Active Substance: BLEOMYCIN SULFATE
     Indication: HODGKIN^S DISEASE
     Route: 065
     Dates: start: 201006, end: 201012
  12. DACARBAZINE. [Suspect]
     Active Substance: DACARBAZINE
     Indication: HODGKIN^S DISEASE
     Route: 065
     Dates: start: 201006, end: 201012
  13. DOXORUBICIN [Suspect]
     Active Substance: DOXORUBICIN
     Indication: HODGKIN^S DISEASE RECURRENT
     Route: 065
     Dates: start: 201207, end: 201210
  14. PREDNISONE. [Suspect]
     Active Substance: PREDNISONE
     Indication: HODGKIN^S DISEASE RECURRENT
     Route: 065
     Dates: start: 201207, end: 201210
  15. VINCRISTINE [Suspect]
     Active Substance: VINCRISTINE
     Indication: HODGKIN^S DISEASE RECURRENT
     Route: 065
     Dates: start: 201207, end: 201210

REACTIONS (2)
  - Off label use [Unknown]
  - Progressive multifocal leukoencephalopathy [Not Recovered/Not Resolved]

NARRATIVE: CASE EVENT DATE: 201306
